FAERS Safety Report 9464195 (Version 1)
Quarter: 2013Q3

REPORT INFORMATION
  Report Type: Spontaneous
  Country: US (occurrence: US)
  Receive Date: 20130819
  Receipt Date: 20130819
  Transmission Date: 20140515
  Serious: Yes (Other)
  Sender: FDA-Public Use
  Company Number: US-BAYER-2013-099560

PATIENT
  Age: 45 Year
  Sex: Female

DRUGS (4)
  1. YASMIN [Suspect]
  2. TRAZODONE [Concomitant]
  3. PROTONIX [Concomitant]
  4. EFFEXOR [Concomitant]

REACTIONS (2)
  - Superior sagittal sinus thrombosis [Recovered/Resolved]
  - Cerebral infarction [None]
